FAERS Safety Report 17469707 (Version 1)
Quarter: 2020Q1

REPORT INFORMATION
  Report Type: Spontaneous
  Country: IN (occurrence: US)
  Receive Date: 20200227
  Receipt Date: 20200227
  Transmission Date: 20200409
  Serious: Yes (Death, Life-Threatening, Hospitalization, Other)
  Sender: FDA-Public Use
  Company Number: US-ELI_LILLY_AND_COMPANY-US202002011604

PATIENT
  Age: 65 Year
  Sex: Female

DRUGS (1)
  1. GEMCITABINE HYDROCHLORIDE. [Suspect]
     Active Substance: GEMCITABINE HYDROCHLORIDE
     Indication: BREAST CANCER METASTATIC
     Dosage: UNK, UNKNOWN
     Route: 065

REACTIONS (9)
  - Renal failure [Unknown]
  - Hepatotoxicity [Fatal]
  - Thrombocytopenia [Unknown]
  - Steatohepatitis [Fatal]
  - Encephalopathy [Fatal]
  - Cholestasis [Fatal]
  - Hypotension [Unknown]
  - Acute hepatic failure [Fatal]
  - Anaemia [Unknown]
